FAERS Safety Report 8624155-8 (Version None)
Quarter: 2012Q3

REPORT INFORMATION
  Report Type: 
  Country: None (occurrence: None)
  Receive Date: 20120824
  Receipt Date: 20120824
  Transmission Date: 20120928
  Serious: No
  Sender: FDA-Public Use
  Company Number: None

PATIENT
  Age: 51 Year
  Sex: Male
  Weight: 82.5547 kg

DRUGS (2)
  1. PERCOCET [Concomitant]
  2. GABAPENTIN [Suspect]
     Dosage: TID
     Dates: start: 20120621, end: 20120629

REACTIONS (3)
  - CONFUSIONAL STATE [None]
  - HALO VISION [None]
  - MEMORY IMPAIRMENT [None]
